FAERS Safety Report 21131228 (Version 1)
Quarter: 2022Q3

REPORT INFORMATION
  Report Type: Spontaneous
  Country: US (occurrence: None)
  Receive Date: 20220725
  Receipt Date: 20220725
  Transmission Date: 20221027
  Serious: Yes (Disabling)
  Sender: FDA-Public Use
  Company Number: None

PATIENT
  Age: 59 Year
  Sex: Female
  Weight: 92.25 kg

DRUGS (15)
  1. MACROBID [Suspect]
     Active Substance: NITROFURANTOIN\NITROFURANTOIN MONOHYDRATE
     Indication: Urinary tract infection
     Dosage: OTHER QUANTITY : 10 CAPSULE(S);?FREQUENCY : TWICE A DAY;?
     Route: 048
     Dates: start: 20220724, end: 20220725
  2. Gabapentin 800 MG 2/day [Concomitant]
  3. Pravastatin 40 MG 1/day [Concomitant]
  4. Cyclobenzaprine 10 MG [Concomitant]
  5. Zyrtec 10 MG 1/day [Concomitant]
  6. Fluticasone 1/spray each nostril at night [Concomitant]
  7. D-Mannose 1000 MG daily [Concomitant]
  8. Preservision AREDS 2 2/day [Concomitant]
  9. Cosamin 2/day [Concomitant]
  10. Prevagen 1/day [Concomitant]
  11. Centrum Silver Women 1/day [Concomitant]
  12. Calcium with Vitamin D 100mg per day [Concomitant]
  13. CO-Q 10 1/day [Concomitant]
  14. Vitamin D 1/day [Concomitant]
  15. Magnesium 1/day [Concomitant]

REACTIONS (6)
  - Hypersensitivity [None]
  - Myalgia [None]
  - Pain in extremity [None]
  - Rash macular [None]
  - Burning sensation [None]
  - Rash [None]

NARRATIVE: CASE EVENT DATE: 20220725
